FAERS Safety Report 26066827 (Version 2)
Quarter: 2025Q4

REPORT INFORMATION
  Report Type: Spontaneous
  Country: US (occurrence: US)
  Receive Date: 20251119
  Receipt Date: 20251119
  Transmission Date: 20260118
  Serious: Yes (Life-Threatening, Other)
  Sender: PURDUE
  Company Number: US-PURDUE PHARMA-USA-2021-0286694

PATIENT
  Sex: Male

DRUGS (6)
  1. OXYCODONE HYDROCHLORIDE [Suspect]
     Active Substance: OXYCODONE HYDROCHLORIDE
     Indication: Product used for unknown indication
     Dosage: UNK
     Route: 048
  2. METHADONE [Suspect]
     Active Substance: METHADONE HYDROCHLORIDE
     Indication: Product used for unknown indication
     Dosage: UNK
     Route: 065
  3. KETAMINE [Suspect]
     Active Substance: KETAMINE
     Indication: Product used for unknown indication
     Dosage: UNK
     Route: 065
  4. FENTANYL [Suspect]
     Active Substance: FENTANYL
     Indication: Product used for unknown indication
     Dosage: UNK
     Route: 042
  5. COCAINE [Suspect]
     Active Substance: COCAINE
     Indication: Product used for unknown indication
     Dosage: UNK
  6. HEROIN [Suspect]
     Active Substance: DIAMORPHINE
     Indication: Product used for unknown indication
     Dosage: UNK
     Route: 065

REACTIONS (7)
  - Respiratory rate decreased [Unknown]
  - Overdose [Recovered/Resolved]
  - Unresponsive to stimuli [Unknown]
  - Injury [Unknown]
  - Miosis [Unknown]
  - Drug abuse [Unknown]
  - Drug screen positive [Unknown]

NARRATIVE: CASE EVENT DATE: 20200501
